FAERS Safety Report 8559909-X (Version None)
Quarter: 2012Q3

REPORT INFORMATION
  Report Type: 
  Country: None (occurrence: None)
  Receive Date: 20120802
  Receipt Date: 20120727
  Transmission Date: 20120928
  Serious: Yes (Hospitalization, Other)
  Sender: FDA-Public Use
  Company Number: PHHY2011US55738

PATIENT
  Sex: Male

DRUGS (19)
  1. AMLODIPINE [Concomitant]
  2. MYFORTIC [Suspect]
     Dosage: 360 MG, BID
     Route: 048
  3. CALCIUM CARBONATE [Concomitant]
  4. SILVER [Concomitant]
  5. TYLENOL (CAPLET) [Concomitant]
  6. AMBIEN [Concomitant]
  7. TOPROL-XL [Concomitant]
  8. DCN-WO [Concomitant]
  9. CENTRUM [Concomitant]
  10. PLAVIX [Concomitant]
  11. PREDNISONE [Concomitant]
  12. PRILOSEC [Concomitant]
  13. FLEXERIL [Concomitant]
  14. ULTRAM [Concomitant]
  15. PROGRAF [Concomitant]
  16. MYFORTIC [Suspect]
     Indication: RENAL TRANSPLANT
     Dosage: 720 MG, BID
     Route: 048
     Dates: start: 20101229
  17. ASPIRIN [Concomitant]
  18. KETOCONAZOLE [Concomitant]
  19. CRESTOR [Concomitant]

REACTIONS (3)
  - CONVULSION [None]
  - CEREBROVASCULAR ACCIDENT [None]
  - ROTATOR CUFF SYNDROME [None]
